FAERS Safety Report 6176162-5 (Version None)
Quarter: 2009Q2

REPORT INFORMATION
  Report Type: 
  Country: None (occurrence: None)
  Receive Date: 20090501
  Receipt Date: 20090420
  Transmission Date: 20091009
  Serious: Yes (Hospitalization, Other)
  Sender: FDA-Public Use
  Company Number: B0571504A

PATIENT
  Sex: Male

DRUGS (6)
  1. PARACETAMOL [Suspect]
     Indication: RESPIRATORY TRACT INFECTION
     Route: 065
     Dates: start: 20070101
  2. IBUPROFEN [Suspect]
     Indication: RESPIRATORY TRACT INFECTION
     Route: 065
     Dates: start: 20070101
  3. AMOXICILLIN [Suspect]
     Indication: RESPIRATORY TRACT INFECTION
     Route: 065
     Dates: start: 20070101
  4. CLARITHROMYCIN [Suspect]
     Indication: RESPIRATORY TRACT INFECTION
     Route: 065
     Dates: start: 20070101
  5. IMATINIB MESYLATE [Concomitant]
     Dosage: 400MG PER DAY
     Route: 065
  6. CYCLOSPORINE [Concomitant]
     Route: 042

REACTIONS (8)
  - ANAL ABSCESS [None]
  - APLASTIC ANAEMIA [None]
  - ENTEROCOCCAL INFECTION [None]
  - FUNGAL INFECTION [None]
  - LUNG INFILTRATION [None]
  - PANCYTOPENIA [None]
  - PYREXIA [None]
  - STENOTROPHOMONAS INFECTION [None]
